FAERS Safety Report 7092282-5 (Version None)
Quarter: 2010Q4

REPORT INFORMATION
  Report Type: 
  Country: None (occurrence: None)
  Receive Date: 20101109
  Receipt Date: 20101029
  Transmission Date: 20110411
  Serious: Yes (Other)
  Sender: FDA-Public Use
  Company Number: DE-MERCK-1011DEU00024

PATIENT
  Age: 70 Year
  Sex: Male
  Weight: 85 kg

DRUGS (2)
  1. ZETIA [Suspect]
     Indication: HYPERTRIGLYCERIDAEMIA
     Route: 048
     Dates: start: 20070301, end: 20100923
  2. ZETIA [Suspect]
     Indication: HYPERLIPIDAEMIA
     Route: 048
     Dates: start: 20070301, end: 20100923

REACTIONS (2)
  - BLADDER CANCER [None]
  - HEPATIC STEATOSIS [None]
